FAERS Safety Report 9805549 (Version 1)
Quarter: 2014Q1

REPORT INFORMATION
  Report Type: Spontaneous
  Country: US (occurrence: US)
  Receive Date: 20140109
  Receipt Date: 20140109
  Transmission Date: 20141002
  Serious: Yes (Life-Threatening, Hospitalization)
  Sender: FDA-Public Use
  Company Number: US-BAYER-2014-002307

PATIENT
  Age: 19 Year
  Sex: Female
  Weight: 74.83 kg

DRUGS (10)
  1. YASMIN [Suspect]
  2. MAXALT [Concomitant]
     Dosage: 10 MG, UNK
     Route: 048
  3. INSULIN ASPART [Concomitant]
     Dosage: 100 U/ML, USE WITH INSULIN PUMP
  4. TOPAMAX [Concomitant]
  5. FIORICET [Concomitant]
  6. PERCOCET [Concomitant]
  7. TRIPTAN [Concomitant]
  8. IMITREX [Concomitant]
  9. DEPAKOTE [Concomitant]
  10. CAFFEINE [Concomitant]

REACTIONS (4)
  - Transverse sinus thrombosis [Recovered/Resolved]
  - Superior sagittal sinus thrombosis [Recovered/Resolved]
  - Jugular vein thrombosis [Recovered/Resolved]
  - Intracranial venous sinus thrombosis [Recovered/Resolved]
